FAERS Safety Report 7476205 (Version 2)
Quarter: 2013Q1

REPORT INFORMATION
  Report Type: Spontaneous
  Country: US (occurrence: US)
  Receive Date: 20100715
  Receipt Date: 20130204
  Transmission Date: 20140127
  Serious: Yes (Hospitalization, Other)
  Sender: FDA-Public Use
  Company Number: US-BRISTOL-MYERS SQUIBB COMPANY-15188881

PATIENT
  Age: 59 Year
  Sex: Female
  Weight: 117.91 kg

DRUGS (15)
  1. METFORMIN HCL [Suspect]
  2. IMMODIUM [Concomitant]
     Dosage: 1 DOAGE FORM=8-9 PER DAY
  3. NOVOLOG [Concomitant]
     Dosage: NOVOLOG FLEX-PEN
  4. MENTAX [Concomitant]
     Indication: DIABETIC NEUROPATHY
  5. MAVIK [Concomitant]
     Indication: HYPERTENSION
  6. VERAPAMIL [Concomitant]
     Indication: MIGRAINE
  7. NEXIUM [Concomitant]
     Indication: GASTROOESOPHAGEAL REFLUX DISEASE
  8. ALLEGRA [Concomitant]
     Indication: HYPERSENSITIVITY
  9. IMITREX [Concomitant]
     Indication: MIGRAINE
  10. AMITRIPTYLINE [Concomitant]
     Indication: HEADACHE
  11. NEURONTIN [Concomitant]
     Indication: NEURALGIA
  12. ESTROGEN [Concomitant]
  13. HYDROCHLOROTHIAZIDE [Concomitant]
  14. SYMBICORT [Concomitant]
  15. SUCRALFATE [Concomitant]

REACTIONS (6)
  - Gastroenteritis bacterial [Unknown]
  - Weight decreased [Unknown]
  - Nausea [Unknown]
  - Diarrhoea [Unknown]
  - Abdominal distension [Unknown]
  - Drug ineffective [Unknown]
